FAERS Safety Report 16578190 (Version 1)
Quarter: 2019Q3

REPORT INFORMATION
  Report Type: Spontaneous
  Country: FR (occurrence: FR)
  Receive Date: 20190716
  Receipt Date: 20190716
  Transmission Date: 20191004
  Serious: Yes (Death, Other)
  Sender: FDA-Public Use
  Company Number: FR-RECORDATI RARE DISEASES INC.-FR-R13005-19-00191

PATIENT
  Age: 8 Year
  Sex: Female

DRUGS (37)
  1. DACTINOMYCIN [Suspect]
     Active Substance: DACTINOMYCIN
     Route: 065
     Dates: start: 20190330
  2. DACTINOMYCIN [Suspect]
     Active Substance: DACTINOMYCIN
     Route: 065
     Dates: start: 20160906
  3. DACTINOMYCIN [Suspect]
     Active Substance: DACTINOMYCIN
     Route: 065
     Dates: start: 20160920
  4. MORPHINE [Suspect]
     Active Substance: MORPHINE
     Indication: HEADACHE
     Route: 065
     Dates: start: 20161107
  5. DACTINOMYCIN [Suspect]
     Active Substance: DACTINOMYCIN
     Route: 065
     Dates: start: 20190420
  6. HOLOXAN [Suspect]
     Active Substance: IFOSFAMIDE
     Route: 065
     Dates: start: 20160309
  7. HOLOXAN [Suspect]
     Active Substance: IFOSFAMIDE
     Route: 065
     Dates: start: 20160420
  8. VINCRISTINE [Suspect]
     Active Substance: VINCRISTINE
     Route: 065
     Dates: start: 20160309
  9. VINCRISTINE [Suspect]
     Active Substance: VINCRISTINE
     Route: 065
     Dates: start: 20160420
  10. VINCRISTINE [Suspect]
     Active Substance: VINCRISTINE
     Route: 065
     Dates: start: 20160512
  11. VINCRISTINE [Suspect]
     Active Substance: VINCRISTINE
     Route: 065
     Dates: start: 20160625
  12. PARACETAMOL [Suspect]
     Active Substance: ACETAMINOPHEN
     Indication: PRODUCT USED FOR UNKNOWN INDICATION
     Route: 065
  13. DACTINOMYCIN [Suspect]
     Active Substance: DACTINOMYCIN
     Route: 065
     Dates: start: 20190309
  14. DACTINOMYCIN [Suspect]
     Active Substance: DACTINOMYCIN
     Route: 065
     Dates: start: 20160816
  15. HOLOXAN [Suspect]
     Active Substance: IFOSFAMIDE
     Route: 065
     Dates: start: 20160604
  16. ENDOXAN [Suspect]
     Active Substance: CYCLOPHOSPHAMIDE
     Route: 065
     Dates: start: 20161105
  17. RIVOTRIL [Suspect]
     Active Substance: CLONAZEPAM
     Indication: PRODUCT USED FOR UNKNOWN INDICATION
     Route: 065
  18. VINCRISTINE [Suspect]
     Active Substance: VINCRISTINE
     Route: 065
     Dates: start: 20160816
  19. ZOPHREN [Suspect]
     Active Substance: ONDANSETRON
     Indication: PRODUCT USED FOR UNKNOWN INDICATION
     Route: 065
  20. HOLOXAN [Suspect]
     Active Substance: IFOSFAMIDE
     Indication: EMBRYONAL RHABDOMYOSARCOMA
     Route: 065
     Dates: start: 20160217
  21. HOLOXAN [Suspect]
     Active Substance: IFOSFAMIDE
     Route: 065
     Dates: start: 20160625
  22. HOLOXAN [Suspect]
     Active Substance: IFOSFAMIDE
     Route: 065
     Dates: start: 20160718
  23. ENDOXAN [Suspect]
     Active Substance: CYCLOPHOSPHAMIDE
     Indication: EMBRYONAL RHABDOMYOSARCOMA
     Route: 065
     Dates: start: 20161006
  24. NAVELBINE [Suspect]
     Active Substance: VINORELBINE TARTRATE
     Indication: EMBRYONAL RHABDOMYOSARCOMA
     Route: 065
     Dates: start: 20161006, end: 20161021
  25. VINCRISTINE [Suspect]
     Active Substance: VINCRISTINE
     Indication: EMBRYONAL RHABDOMYOSARCOMA
     Route: 065
     Dates: start: 20190217
  26. VINCRISTINE [Suspect]
     Active Substance: VINCRISTINE
     Route: 065
     Dates: start: 20160604
  27. MICROPAKINE [Suspect]
     Active Substance: VALPROATE SODIUM
     Indication: PRODUCT USED FOR UNKNOWN INDICATION
     Route: 065
  28. ENDOXAN [Suspect]
     Active Substance: CYCLOPHOSPHAMIDE
     Route: 065
     Dates: start: 20161104
  29. HOLOXAN [Suspect]
     Active Substance: IFOSFAMIDE
     Route: 065
     Dates: start: 20160512
  30. ENDOXAN [Suspect]
     Active Substance: CYCLOPHOSPHAMIDE
     Route: 065
     Dates: start: 20161106
  31. VINCRISTINE [Suspect]
     Active Substance: VINCRISTINE
     Route: 065
     Dates: start: 20160718
  32. DACTINOMYCIN [Suspect]
     Active Substance: DACTINOMYCIN
     Indication: EMBRYONAL RHABDOMYOSARCOMA
     Route: 065
     Dates: start: 20160217
  33. DACTINOMYCIN [Suspect]
     Active Substance: DACTINOMYCIN
     Route: 065
     Dates: start: 20190512
  34. DACTINOMYCIN [Suspect]
     Active Substance: DACTINOMYCIN
     Route: 065
     Dates: start: 20160718
  35. HOLOXAN [Suspect]
     Active Substance: IFOSFAMIDE
     Route: 065
     Dates: start: 20160330
  36. HOLOXAN [Suspect]
     Active Substance: IFOSFAMIDE
     Route: 065
     Dates: start: 20160816
  37. VINCRISTINE [Suspect]
     Active Substance: VINCRISTINE
     Route: 065
     Dates: start: 20160330

REACTIONS (11)
  - Metastases to meninges [Fatal]
  - Dyspnoea [Fatal]
  - Epistaxis [Fatal]
  - Metastases to meninges [Fatal]
  - Headache [Fatal]
  - Vomiting [Fatal]
  - Meningitis noninfective [Fatal]
  - Muscle spasms [Fatal]
  - Arrhythmia [Fatal]
  - Epilepsy [Fatal]
  - Bradypnoea [Fatal]

NARRATIVE: CASE EVENT DATE: 20160801
